FAERS Safety Report 6874035-3 (Version None)
Quarter: 2010Q3

REPORT INFORMATION
  Report Type: 
  Country: None (occurrence: None)
  Receive Date: 20100723
  Receipt Date: 20100715
  Transmission Date: 20110219
  Serious: Yes (Hospitalization)
  Sender: FDA-Public Use
  Company Number: 2010SP038725

PATIENT
  Age: 49 Year
  Sex: Male
  Weight: 85 kg

DRUGS (2)
  1. PEGINTERFERON ALFA-2B [Suspect]
     Indication: HEPATITIS C
     Dosage: 150 MG; QW; SC
     Route: 058
     Dates: start: 20100205, end: 20100407
  2. RIBAVIRIN [Suspect]
     Indication: HEPATITIS C
     Dosage: 1200 MG; QD; PO
     Route: 048
     Dates: start: 20100205, end: 20100407

REACTIONS (3)
  - ABSCESS [None]
  - ARTHROPOD STING [None]
  - MUSCLE NECROSIS [None]
